FAERS Safety Report 9528128 (Version 1)
Quarter: 2013Q1

REPORT INFORMATION
  Report Type: Spontaneous
  Country: US (occurrence: None)
  Receive Date: 20130314
  Receipt Date: 20130314
  Transmission Date: 20140127
  Serious: No
  Sender: FDA-Public Use
  Company Number: 1212USA001459

PATIENT
  Age: 61 Year
  Sex: Female

DRUGS (3)
  1. PEGINTRON [Suspect]
     Indication: HEPATITIS C
     Dates: end: 20121118
  2. RIBAVIRIN [Suspect]
     Indication: HEPATITIS C
  3. VICTRELIS [Concomitant]
     Indication: HEPATITIS C

REACTIONS (5)
  - Injection site reaction [None]
  - Pruritus [None]
  - Rash [None]
  - Headache [None]
  - White blood cell count decreased [None]
